FAERS Safety Report 18130131 (Version 1)
Quarter: 2020Q3

REPORT INFORMATION
  Report Type: Spontaneous
  Country: US (occurrence: US)
  Receive Date: 20200810
  Receipt Date: 20200810
  Transmission Date: 20201103
  Serious: Yes (Other)
  Sender: FDA-Public Use
  Company Number: US-ACTELION-A-CH2020-207694

PATIENT
  Age: 11 Year
  Sex: Female

DRUGS (6)
  1. UPTRAVI [Suspect]
     Active Substance: SELEXIPAG
     Indication: PULMONARY HYPERTENSION
     Dosage: 200 MCG, BID
     Route: 048
  2. OXYGEN. [Concomitant]
     Active Substance: OXYGEN
  3. SILDENAFIL. [Concomitant]
     Active Substance: SILDENAFIL
     Indication: PULMONARY HYPERTENSION
     Dosage: 20 MG, TID
  4. NITRIC OXIDE. [Concomitant]
     Active Substance: NITRIC OXIDE
  5. UPTRAVI [Suspect]
     Active Substance: SELEXIPAG
     Dosage: 800 MCG, BID
     Route: 048
  6. BOSENTAN. [Suspect]
     Active Substance: BOSENTAN
     Indication: PULMONARY HYPERTENSION
     Dosage: 62.5 MG, BID
     Route: 048

REACTIONS (9)
  - Pulmonary hypertension [Unknown]
  - Pulmonary arterial pressure increased [Unknown]
  - Catheterisation cardiac [Unknown]
  - Nausea [Unknown]
  - Pulmonary vascular disorder [Unknown]
  - Diarrhoea [Unknown]
  - Disease progression [Unknown]
  - General physical health deterioration [Unknown]
  - Left ventricular dysfunction [Unknown]
